FAERS Safety Report 4279889-5 (Version None)
Quarter: 2004Q1

REPORT INFORMATION
  Report Type: 
  Country: None (occurrence: None)
  Receive Date: 20040127
  Receipt Date: 20040127
  Transmission Date: 20041129
  Serious: Yes (Life-Threatening, Hospitalization, Disabling)
  Sender: FDA-Public Use
  Company Number: None

PATIENT
  Age: 47 Year
  Sex: Female
  Weight: 65.7716 kg

DRUGS (1)
  1. TORADOL [Suspect]
     Indication: POSTOPERATIVE ANALGESIA
     Dosage: INTRAVENOUS
     Route: 042
     Dates: start: 20031229, end: 20031230

REACTIONS (7)
  - ANAPHYLACTIC REACTION [None]
  - CHEST PAIN [None]
  - DYSPNOEA [None]
  - HEADACHE [None]
  - OEDEMA [None]
  - PRURITUS [None]
  - SWELLING FACE [None]
